FAERS Safety Report 10693819 (Version 7)
Quarter: 2015Q3

REPORT INFORMATION
  Report Type: Report from Study
  Country: GB (occurrence: GB)
  Receive Date: 20150106
  Receipt Date: 20150708
  Transmission Date: 20151125
  Serious: Yes (Hospitalization, Other)
  Sender: FDA-Public Use
  Company Number: GB-ALEXION PHARMACEUTICALS INC-A201404909

PATIENT

DRUGS (3)
  1. SOLIRIS [Suspect]
     Active Substance: ECULIZUMAB
     Indication: PAROXYSMAL NOCTURNAL HAEMOGLOBINURIA
     Dosage: 900 MG, Q2W
     Route: 042
  2. SOLIRIS [Suspect]
     Active Substance: ECULIZUMAB
     Dosage: 900 MG, Q2W
     Route: 042
  3. SOLIRIS [Suspect]
     Active Substance: ECULIZUMAB
     Dosage: 900 MG, Q2W
     Route: 042

REACTIONS (8)
  - Abdominal pain upper [Recovered/Resolved]
  - Abdominal pain [Unknown]
  - Cholecystitis [Unknown]
  - Gallbladder disorder [Not Recovered/Not Resolved]
  - Nausea [Unknown]
  - Gastric ulcer [Not Recovered/Not Resolved]
  - Chest pain [Unknown]
  - Gallbladder pain [Recovered/Resolved]

NARRATIVE: CASE EVENT DATE: 20141226
